FAERS Safety Report 24581250 (Version 1)
Quarter: 2024Q4

REPORT INFORMATION
  Report Type: Spontaneous
  Country: CN (occurrence: CN)
  Receive Date: 20241105
  Receipt Date: 20241105
  Transmission Date: 20250115
  Serious: Yes (Other)
  Sender: NOVARTIS
  Company Number: CN-002147023-NVSC2024CN213869

PATIENT
  Age: 35 Year
  Sex: Female

DRUGS (3)
  1. SECUKINUMAB [Suspect]
     Active Substance: SECUKINUMAB
     Indication: Palmoplantar pustulosis
     Dosage: 300 MG, QW
     Route: 065
  2. SECUKINUMAB [Suspect]
     Active Substance: SECUKINUMAB
     Dosage: 300 MG, QMO
     Route: 065
  3. METHYLPREDNISOLONE [Concomitant]
     Active Substance: METHYLPREDNISOLONE
     Indication: Rheumatic heart disease
     Dosage: 4 MG, QD
     Route: 065

REACTIONS (5)
  - Pyoderma gangrenosum [Recovering/Resolving]
  - Rash [Unknown]
  - Skin ulcer [Unknown]
  - Erythema [Unknown]
  - Product use in unapproved indication [Unknown]
